FAERS Safety Report 18788145 (Version 1)
Quarter: 2021Q1

REPORT INFORMATION
  Report Type: Spontaneous
  Country: US (occurrence: US)
  Receive Date: 20210126
  Receipt Date: 20210126
  Transmission Date: 20210419
  Serious: Yes (Hospitalization)
  Sender: FDA-Public Use
  Company Number: None

PATIENT
  Age: 63 Year
  Sex: Female
  Weight: 67.5 kg

DRUGS (3)
  1. ENTRESTO [Suspect]
     Active Substance: SACUBITRIL\VALSARTAN
     Indication: CARDIAC DISORDER
     Dosage: ?          QUANTITY:1 TABLET(S);?
  2. MULTIVITAMIN [Concomitant]
     Active Substance: VITAMINS
  3. FELODIPINE. [Concomitant]
     Active Substance: FELODIPINE

REACTIONS (1)
  - Urticaria [None]

NARRATIVE: CASE EVENT DATE: 20210124
